FAERS Safety Report 13655012 (Version 1)
Quarter: 2017Q2

REPORT INFORMATION
  Report Type: Report from Study
  Country: US (occurrence: US)
  Receive Date: 20170615
  Receipt Date: 20170615
  Transmission Date: 20170830
  Serious: Yes (Death, Hospitalization)
  Sender: FDA-Public Use
  Company Number: US-TORRENT-00003052

PATIENT
  Age: 53 Year
  Sex: Female

DRUGS (7)
  1. SALICYLIC ACID. [Suspect]
     Active Substance: SALICYLIC ACID
  2. ACETAMINOPHEN AND DIPHENHYDRAMINE HYDROCHLORIDE [Suspect]
     Active Substance: ACETAMINOPHEN\DIPHENHYDRAMINE HYDROCHLORIDE
  3. AMITRIPTYLINE [Suspect]
     Active Substance: AMITRIPTYLINE
  4. QUETIAPINE. [Suspect]
     Active Substance: QUETIAPINE
  5. ALCOHOL. [Suspect]
     Active Substance: ALCOHOL
  6. UNKNOWN [Concomitant]
     Active Substance: UNSPECIFIED INGREDIENT
  7. LORAZEPAM. [Suspect]
     Active Substance: LORAZEPAM

REACTIONS (2)
  - Toxicity to various agents [Fatal]
  - Completed suicide [Fatal]
